FAERS Safety Report 10174304 (Version 2)
Quarter: 2014Q2

REPORT INFORMATION
  Report Type: Spontaneous
  Country: US (occurrence: US)
  Receive Date: 20140515
  Receipt Date: 20140613
  Transmission Date: 20141212
  Serious: Yes (Hospitalization)
  Sender: FDA-Public Use
  Company Number: US-B.I. PHARMACEUTICALS,INC./RIDGEFIELD-2014-BI-21056BP

PATIENT
  Age: 76 Year
  Sex: Female
  Weight: 73 kg

DRUGS (12)
  1. SPIRIVA [Suspect]
     Indication: CHRONIC OBSTRUCTIVE PULMONARY DISEASE
     Dosage: 18 MCG
     Route: 055
     Dates: start: 201403
  2. LIPITOR [Concomitant]
     Indication: BLOOD CHOLESTEROL INCREASED
     Dosage: 20 MG
     Route: 048
  3. LASIX [Concomitant]
     Indication: JOINT SWELLING
     Dosage: 40 MG
     Route: 048
  4. LASIX [Concomitant]
     Indication: LOCAL SWELLING
  5. COZAAR [Concomitant]
     Indication: HYPERTENSION
     Dosage: 50 MG
     Route: 048
  6. METOPROLOL [Concomitant]
     Indication: HYPERTENSION
     Dosage: 50 MG
     Route: 048
  7. PROTONIX [Concomitant]
     Indication: GASTROOESOPHAGEAL REFLUX DISEASE
     Dosage: 40 MG
     Route: 048
  8. PROTONIX [Concomitant]
     Indication: HIATUS HERNIA
  9. EFFIENT [Concomitant]
     Indication: ANTICOAGULANT THERAPY
     Dosage: 10 MG
     Route: 048
  10. ADVAIR [Concomitant]
     Indication: CHRONIC OBSTRUCTIVE PULMONARY DISEASE
     Dosage: STRENGTH: 500/50; DAILY DOSE: 1000/100
     Route: 055
  11. CENTRUM SILVER MULTIVITAMIN [Concomitant]
     Dosage: FORMULATION: (CAPLET)
     Route: 048
  12. CALTRATE WITH D [Concomitant]
     Dosage: 1200 MG
     Route: 048

REACTIONS (2)
  - Vomiting [Recovered/Resolved]
  - Product quality issue [Recovered/Resolved]
